FAERS Safety Report 9400415 (Version 2)
Quarter: 2013Q3

REPORT INFORMATION
  Report Type: Spontaneous
  Country: US (occurrence: US)
  Receive Date: 20130715
  Receipt Date: 20130827
  Transmission Date: 20140515
  Serious: Yes (Other)
  Sender: FDA-Public Use
  Company Number: US-PFIZER INC-2013202706

PATIENT
  Age: 87 Year
  Sex: Male

DRUGS (1)
  1. CELEBREX [Suspect]
     Dosage: 200 MG, 2X/DAY

REACTIONS (3)
  - Renal disorder [Unknown]
  - Musculoskeletal stiffness [Unknown]
  - Myalgia [Unknown]
